FAERS Safety Report 22025894 (Version 2)
Quarter: 2024Q2

REPORT INFORMATION
  Report Type: Spontaneous
  Country: US (occurrence: None)
  Receive Date: 20230223
  Receipt Date: 20240410
  Transmission Date: 20240716
  Serious: Yes (Hospitalization)
  Sender: FDA-Public Use
  Company Number: US-ROCHE-3161509

PATIENT
  Age: 46 Year
  Sex: Female

DRUGS (10)
  1. XOLAIR [Suspect]
     Active Substance: OMALIZUMAB
     Indication: Asthma
     Dosage: STRENGTH: 150 MG/ML
     Route: 058
     Dates: start: 201904
  2. XOLAIR [Suspect]
     Active Substance: OMALIZUMAB
  3. XOLAIR [Suspect]
     Active Substance: OMALIZUMAB
     Route: 058
     Dates: start: 201807
  4. XOLAIR [Suspect]
     Active Substance: OMALIZUMAB
  5. HYQVIA [Suspect]
     Active Substance: HUMAN IMMUNOGLOBULIN G\HYALURONIDASE (HUMAN RECOMBINANT)
     Indication: Product used for unknown indication
     Route: 065
  6. TYLENOL [Concomitant]
     Active Substance: ACETAMINOPHEN
     Route: 065
  7. BENADRYL [Concomitant]
     Active Substance: DIPHENHYDRAMINE HYDROCHLORIDE
     Route: 065
  8. DIPHENHYDRAMINE [Concomitant]
     Active Substance: DIPHENHYDRAMINE
  9. LIDOCAINE [Concomitant]
     Active Substance: LIDOCAINE
  10. PRILOCAINE [Concomitant]
     Active Substance: PRILOCAINE

REACTIONS (9)
  - Meningitis aseptic [Unknown]
  - Pruritus [Unknown]
  - Headache [Unknown]
  - Malaise [Unknown]
  - Infection [Unknown]
  - Muscle spasms [Unknown]
  - Joint stiffness [Unknown]
  - Migraine [Unknown]
  - Visual impairment [Unknown]
